FAERS Safety Report 6568126-4 (Version None)
Quarter: 2010Q1

REPORT INFORMATION
  Report Type: 
  Country: None (occurrence: None)
  Receive Date: 20100203
  Receipt Date: 20100125
  Transmission Date: 20100710
  Serious: Yes (Hospitalization, Other)
  Sender: FDA-Public Use
  Company Number: US-BAYER-200923100NA

PATIENT
  Age: 25 Year
  Sex: Female
  Weight: 86 kg

DRUGS (2)
  1. MIRENA [Suspect]
     Indication: CONTRACEPTION
     Dosage: CONTINUOUS
     Route: 015
     Dates: start: 20090302, end: 20090722
  2. CELEXA [Concomitant]
     Dosage: 30 MG PO

REACTIONS (8)
  - AMNIORRHOEA [None]
  - CHORIOAMNIONITIS [None]
  - DEVICE RELATED INFECTION [None]
  - INFLUENZA LIKE ILLNESS [None]
  - MEDICATION ERROR [None]
  - PREMATURE RUPTURE OF MEMBRANES [None]
  - PYREXIA [None]
  - UTERINE CONTRACTIONS DURING PREGNANCY [None]
